FAERS Safety Report 25964249 (Version 1)
Quarter: 2025Q4

REPORT INFORMATION
  Report Type: Spontaneous
  Country: PA (occurrence: PA)
  Receive Date: 20251027
  Receipt Date: 20251027
  Transmission Date: 20260118
  Serious: Yes (Other)
  Sender: SANDOZ
  Company Number: PA-002147023-NVSC2025PA162932

PATIENT
  Age: 53 Year
  Sex: Female

DRUGS (2)
  1. FULVESTRANT [Suspect]
     Active Substance: FULVESTRANT
     Indication: Product used for unknown indication
     Dosage: UNK
     Route: 065
  2. KISQALI [Suspect]
     Active Substance: RIBOCICLIB SUCCINATE
     Indication: Breast cancer metastatic
     Dosage: 600 MG, QD
     Route: 048
     Dates: start: 20250919

REACTIONS (8)
  - Metastases to pleura [Unknown]
  - Concomitant disease aggravated [Recovered/Resolved]
  - Vulvovaginal discomfort [Recovering/Resolving]
  - Malaise [Unknown]
  - Inadequate lubrication [Unknown]
  - Dizziness [Recovered/Resolved]
  - Cough [Unknown]
  - Asthenia [Unknown]

NARRATIVE: CASE EVENT DATE: 20251001
